FAERS Safety Report 19088301 (Version 6)
Quarter: 2021Q4

REPORT INFORMATION
  Report Type: Report from Study
  Country: CA (occurrence: CA)
  Receive Date: 20210402
  Receipt Date: 20211210
  Transmission Date: 20220303
  Serious: Yes (Hospitalization, Other)
  Sender: FDA-Public Use
  Company Number: CA-TAKEDA-2021TUS020179

PATIENT
  Age: 80 Year
  Sex: Male

DRUGS (4)
  1. VEDOLIZUMAB [Suspect]
     Active Substance: VEDOLIZUMAB
     Indication: Colitis ulcerative
     Dosage: 300 MILLIGRAM
     Route: 042
     Dates: start: 20170214
  2. VEDOLIZUMAB [Suspect]
     Active Substance: VEDOLIZUMAB
     Dosage: 300 MILLIGRAM
     Route: 042
  3. CALCIUM\VITAMIN D [Concomitant]
     Active Substance: CALCIUM\VITAMIN D
     Dosage: UNK
  4. FERROUS SULFATE [Concomitant]
     Active Substance: FERROUS SULFATE
     Dosage: UNK

REACTIONS (5)
  - Urosepsis [Unknown]
  - Cystitis [Unknown]
  - Hyperhidrosis [Unknown]
  - Abdominal neoplasm [Unknown]
  - Neoplasm [Unknown]

NARRATIVE: CASE EVENT DATE: 20210301
